FAERS Safety Report 11870027 (Version 1)
Quarter: 2015Q4

REPORT INFORMATION
  Report Type: Spontaneous
  Country: CA (occurrence: CA)
  Receive Date: 20151228
  Receipt Date: 20151228
  Transmission Date: 20160305
  Serious: Yes (Other)
  Sender: FDA-Public Use
  Company Number: CA-TEVA-621132ACC

PATIENT
  Age: 63 Year
  Sex: Female
  Weight: 63.56 kg

DRUGS (1)
  1. METHOTREXATE [Suspect]
     Active Substance: METHOTREXATE
     Indication: RHEUMATOID ARTHRITIS
     Route: 048

REACTIONS (6)
  - Neoplasm malignant [Unknown]
  - Bundle branch block left [Unknown]
  - Diplopia [Unknown]
  - Sinus tachycardia [Unknown]
  - Lymphadenopathy mediastinal [Unknown]
  - Weight decreased [Unknown]
